FAERS Safety Report 20577541 (Version 9)
Quarter: 2025Q4

REPORT INFORMATION
  Report Type: Spontaneous
  Country: JP (occurrence: JP)
  Receive Date: 20220310
  Receipt Date: 20251003
  Transmission Date: 20260117
  Serious: Yes (Hospitalization, Other)
  Sender: BRISTOL-MYERS SQUIBB COMPANY
  Company Number: JP-BRISTOL-MYERS SQUIBB COMPANY-BMS-2021-109509

PATIENT
  Age: 77 Year
  Sex: Female
  Weight: 46 kg

DRUGS (11)
  1. YERVOY [Suspect]
     Active Substance: IPILIMUMAB
     Indication: Non-small cell lung cancer recurrent
     Dates: start: 20210430, end: 20210514
  2. OPDIVO [Suspect]
     Active Substance: NIVOLUMAB
     Indication: Non-small cell lung cancer recurrent
     Dates: start: 20210430, end: 20210514
  3. CARBOPLATIN [Suspect]
     Active Substance: CARBOPLATIN
     Indication: Non-small cell lung cancer recurrent
     Dosage: UNK, EVERYDAY
     Dates: start: 20210224, end: 20210406
  4. PRAVASTATIN SODIUM [Concomitant]
     Active Substance: PRAVASTATIN SODIUM
     Indication: Product used for unknown indication
     Dosage: AFTER BREAKFAST, 14 DAYS^ SUPPLY, 10 MG, EVERYDAY
  5. TELMISARTAN [Concomitant]
     Active Substance: TELMISARTAN
     Indication: Product used for unknown indication
  6. AMLODIPINE [Concomitant]
     Active Substance: AMLODIPINE BESYLATE
     Indication: Product used for unknown indication
     Dosage: AFTER BREAKFAST, 14 DAYS^ SUPPLY, 5 MG, EVERYDAY
  7. MIYA-BM [Concomitant]
     Active Substance: CLOSTRIDIUM BUTYRICUM SPORES STRAIN M-55
     Indication: Product used for unknown indication
     Dosage: AFTER BREAKFAST, LUNCH, AND DINNER, 14 DAYS, 1 DF, Q8H
  8. Heparinoid [Concomitant]
     Indication: Product used for unknown indication
     Dosage: 1 BOTTLE/1 TIME, MORNING, BEFORE SLEEP, 1 DAY^S SUPPLY, 1 DF, Q12H
  9. POLARAMINE [Concomitant]
     Active Substance: DEXCHLORPHENIRAMINE MALEATE
     Indication: Infusion related reaction
  10. ACETAMINOPHEN [Concomitant]
     Active Substance: ACETAMINOPHEN
     Indication: Infusion related reaction
  11. CALONAL [Concomitant]
     Active Substance: ACETAMINOPHEN
     Indication: Infusion related reaction

REACTIONS (4)
  - Radiation pneumonitis [Recovered/Resolved]
  - Rash [Recovered/Resolved]
  - Feeling hot [Recovered/Resolved]
  - Infusion related reaction [Recovering/Resolving]

NARRATIVE: CASE EVENT DATE: 20210430
